FAERS Safety Report 25868344 (Version 1)
Quarter: 2025Q4

REPORT INFORMATION
  Report Type: Other
  Country: EU (occurrence: EU)
  Receive Date: 20251001
  Receipt Date: 20251001
  Transmission Date: 20260118
  Serious: Yes (Life-Threatening, Hospitalization, Congenital Anomaly)
  Sender: ZYDUS PHARM
  Company Number: None

PATIENT

DRUGS (1)
  1. SERTRALINE [Suspect]
     Active Substance: SERTRALINE HYDROCHLORIDE
     Indication: Panic attack
     Dosage: 50 MILLIGRAM, QD
     Route: 064
     Dates: end: 20250719

REACTIONS (4)
  - Neonatal respiratory depression [Recovered/Resolved]
  - Hypoglycaemia neonatal [Recovered/Resolved]
  - Perinatal stroke [Recovered/Resolved with Sequelae]
  - Anomaly of external ear congenital [Not Recovered/Not Resolved]

NARRATIVE: CASE EVENT DATE: 20250719
